FAERS Safety Report 9197386 (Version 1)
Quarter: 2013Q1

REPORT INFORMATION
  Report Type: Spontaneous
  Country: US (occurrence: US)
  Receive Date: 20130328
  Receipt Date: 20130328
  Transmission Date: 20140127
  Serious: No
  Sender: FDA-Public Use
  Company Number: US-PFIZER INC-2013099134

PATIENT
  Age: 59 Year
  Sex: Female
  Weight: 112 kg

DRUGS (1)
  1. SUTENT [Suspect]
     Indication: TUMOUR INVASION
     Dosage: 112.5 MG, 1X/DAY (37.5 MG, 3 TABLETS, DAILY)
     Route: 048
     Dates: start: 20130307

REACTIONS (5)
  - Nausea [Not Recovered/Not Resolved]
  - Vomiting [Not Recovered/Not Resolved]
  - Stomatitis [Not Recovered/Not Resolved]
  - Diarrhoea [Not Recovered/Not Resolved]
  - Dysgeusia [Not Recovered/Not Resolved]
